FAERS Safety Report 9310325 (Version 2)
Quarter: 2014Q1

REPORT INFORMATION
  Report Type: Spontaneous
  Country: US (occurrence: US)
  Receive Date: 20130527
  Receipt Date: 20140327
  Transmission Date: 20141002
  Serious: Yes (Congenital Anomaly, Other)
  Sender: FDA-Public Use
  Company Number: US-PFIZER INC-2013159471

PATIENT
  Sex: Female

DRUGS (6)
  1. ZOLOFT [Suspect]
     Indication: DEPRESSION
     Dosage: 100 MG, UNK
     Route: 064
     Dates: start: 20030311, end: 20031222
  2. ZYRTEC [Concomitant]
     Indication: ANTIALLERGIC THERAPY
     Dosage: UNK
     Route: 064
  3. IRON [Concomitant]
     Indication: IRON DEFICIENCY
     Dosage: UNK
     Route: 064
  4. ATENOLOL [Concomitant]
     Indication: HEART RATE IRREGULAR
     Dosage: UNK
     Route: 064
  5. SINGULAIR [Concomitant]
     Dosage: UNK
     Route: 064
  6. ALBUTEROL [Concomitant]
     Indication: DYSPNOEA
     Dosage: UNK
     Route: 064

REACTIONS (3)
  - Maternal exposure during pregnancy [Unknown]
  - Talipes [Unknown]
  - Congenital anomaly [Unknown]
